FAERS Safety Report 5108152-5 (Version None)
Quarter: 2006Q3

REPORT INFORMATION
  Report Type: 
  Country: None (occurrence: None)
  Receive Date: 20060919
  Receipt Date: 20060918
  Transmission Date: 20061208
  Serious: Yes (Life-Threatening)
  Sender: FDA-Public Use
  Company Number: FR-GLAXOSMITHKLINE-B0438473A

PATIENT
  Age: 49 Year
  Sex: Male

DRUGS (3)
  1. AUGMENTIN '125' [Suspect]
     Dosage: 1G SINGLE DOSE
     Route: 042
     Dates: start: 20060614, end: 20060614
  2. MARCAINE [Concomitant]
     Dosage: 1ML SINGLE DOSE
     Route: 037
     Dates: start: 20060614, end: 20060614
  3. HYPNOVEL [Concomitant]
     Dosage: 2MG SINGLE DOSE
     Route: 042
     Dates: start: 20060614, end: 20060614

REACTIONS (7)
  - ABDOMINAL PAIN [None]
  - ANAPHYLACTIC SHOCK [None]
  - CHEST PAIN [None]
  - CONDUCTION DISORDER [None]
  - ELECTROCARDIOGRAM ST SEGMENT DEPRESSION [None]
  - HYPOTENSION [None]
  - RASH [None]
